FAERS Safety Report 5792622-0 (Version None)
Quarter: 2008Q2

REPORT INFORMATION
  Report Type: 
  Country: None (occurrence: None)
  Receive Date: 20080626
  Receipt Date: 20080616
  Transmission Date: 20081010
  Serious: Yes (Other)
  Sender: FDA-Public Use
  Company Number: BR-PFIZER INC-2008051283

PATIENT
  Sex: Female
  Weight: 70 kg

DRUGS (4)
  1. XALATAN [Suspect]
     Indication: GLAUCOMA
     Dosage: TEXT:UNKNOWN UNKNOW UNKNOWN TDD:UNKNOWN
  2. XALACOM [Suspect]
     Indication: GLAUCOMA
     Dosage: TEXT:UNKNOWN UNKNOW UNKNOWN TDD:UNKNOWN
  3. ALL OTHER THERAPEUTIC PRODUCTS [Concomitant]
     Route: 065
  4. AMINOPHYLLINE [Concomitant]
     Route: 048

REACTIONS (3)
  - CATARACT [None]
  - DRUG INEFFECTIVE [None]
  - VISUAL ACUITY REDUCED [None]
